FAERS Safety Report 7532215-8 (Version None)
Quarter: 2011Q2

REPORT INFORMATION
  Report Type: 
  Country: None (occurrence: None)
  Receive Date: 20110608
  Receipt Date: 20110604
  Transmission Date: 20111010
  Serious: Yes (Other)
  Sender: FDA-Public Use
  Company Number: US-PFIZER INC-2011122322

PATIENT
  Sex: Male

DRUGS (2)
  1. ADVIL LIQUI-GELS [Suspect]
     Dosage: UNK
     Dates: start: 20110504
  2. VIAGRA [Suspect]
     Dosage: UNK
     Route: 048
     Dates: start: 20110504

REACTIONS (1)
  - ERECTION INCREASED [None]
